FAERS Safety Report 5573552-6 (Version None)
Quarter: 2007Q4

REPORT INFORMATION
  Report Type: 
  Country: None (occurrence: None)
  Receive Date: 20071220
  Receipt Date: 20071220
  Transmission Date: 20080405
  Serious: Yes (Life-Threatening, Other)
  Sender: FDA-Public Use
  Company Number: None

PATIENT
  Age: 48 Year
  Sex: Female
  Weight: 70.3075 kg

DRUGS (2)
  1. HUMALOG PEN [Suspect]
     Indication: TYPE 1 DIABETES MELLITUS
     Dosage: 14 UNITS  3 TO 4 X PER DAY  ID
     Route: 026
     Dates: start: 20060901, end: 20060901
  2. LANTUS [Suspect]
     Dosage: 15 UNITS  1X BEFORE BEDTIME  ID
     Route: 026
     Dates: start: 20071218, end: 20071218

REACTIONS (6)
  - DRUG HYPERSENSITIVITY [None]
  - LETHARGY [None]
  - NEUROLOGICAL EXAMINATION ABNORMAL [None]
  - PARALYSIS [None]
  - PHARMACEUTICAL PRODUCT COMPLAINT [None]
  - SHOCK HYPOGLYCAEMIC [None]
